FAERS Safety Report 23800454 (Version 1)
Quarter: 2024Q2

REPORT INFORMATION
  Report Type: Spontaneous
  Country: US (occurrence: None)
  Receive Date: 20240429
  Receipt Date: 20240429
  Transmission Date: 20240716
  Serious: Yes (Hospitalization)
  Sender: FDA-Public Use
  Company Number: None

PATIENT
  Age: 67 Year
  Sex: Female

DRUGS (1)
  1. PROCRIT [Suspect]
     Active Substance: ERYTHROPOIETIN
     Indication: Anaemia
     Dosage: 40,000 UNITS WEEKLY SQ?
     Route: 058
     Dates: start: 202310

REACTIONS (1)
  - Myeloid leukaemia [None]

NARRATIVE: CASE EVENT DATE: 20240424
